FAERS Safety Report 6696102-X (Version None)
Quarter: 2010Q2

REPORT INFORMATION
  Report Type: 
  Country: None (occurrence: None)
  Receive Date: 20100426
  Receipt Date: 20100412
  Transmission Date: 20101027
  Serious: Yes (Other)
  Sender: FDA-Public Use
  Company Number: US-ASTRAZENECA-2009UW17872

PATIENT
  Age: 20795 Day
  Sex: Male

DRUGS (5)
  1. SEROQUEL [Suspect]
     Route: 048
     Dates: start: 20060307
  2. SEROQUEL [Suspect]
     Route: 048
     Dates: start: 20070818
  3. PREDNISONE [Concomitant]
     Dosage: FOUR TABS PER DAY FOR ONE WEEK,TAKE THREE TABS PER DAY EVERY OTHER DAY FOR ONE WEEK,TWO TABLETS EVE
     Route: 048
     Dates: start: 20060223
  4. PREDNISONE [Concomitant]
     Dosage: ONE AND HALF TABLETS BY MOUTH DAILY
     Route: 048
     Dates: start: 20070918
  5. LEXAPRO [Concomitant]
     Dates: start: 20060323

REACTIONS (3)
  - DIABETES MELLITUS [None]
  - DIABETES MELLITUS INADEQUATE CONTROL [None]
  - DIABETIC NEUROPATHY [None]
